FAERS Safety Report 4911811-8 (Version None)
Quarter: 2006Q1

REPORT INFORMATION
  Report Type: 
  Country: None (occurrence: None)
  Receive Date: 20060215
  Receipt Date: 20060208
  Transmission Date: 20060701
  Serious: Yes (Hospitalization)
  Sender: FDA-Public Use
  Company Number: 2006UW02209

PATIENT
  Age: 67 Year
  Sex: Male

DRUGS (12)
  1. CRESTOR [Suspect]
     Route: 048
     Dates: end: 20060201
  2. HUMULIN 70/30 [Concomitant]
     Dosage: 70/30 UNITS
  3. MAXZIDE [Concomitant]
  4. METFORMIN [Concomitant]
  5. ZOLOFT [Concomitant]
  6. COZAAR [Concomitant]
  7. LORTAB [Concomitant]
  8. ACTOS [Concomitant]
  9. NEURONTIN [Concomitant]
  10. VISTARIL [Concomitant]
  11. FENTANYL [Concomitant]
  12. OXYLR [Concomitant]

REACTIONS (3)
  - BLOOD CREATINE PHOSPHOKINASE INCREASED [None]
  - BLOOD CREATININE INCREASED [None]
  - CEREBROVASCULAR ACCIDENT [None]
